FAERS Safety Report 13783528 (Version 1)
Quarter: 2017Q3

REPORT INFORMATION
  Report Type: Spontaneous
  Country: GB (occurrence: GB)
  Receive Date: 20170724
  Receipt Date: 20170724
  Transmission Date: 20171127
  Serious: Yes (Other)
  Sender: FDA-Public Use
  Company Number: GB-GALDERMA-GB17005262

PATIENT
  Age: 52 Year
  Sex: Female
  Weight: 51 kg

DRUGS (2)
  1. METRONIDAZOLE. [Suspect]
     Active Substance: METRONIDAZOLE
     Indication: PRODUCT USED FOR UNKNOWN INDICATION
     Dates: start: 20170705
  2. ELECTRONIC CIGARETTE [Interacting]
     Active Substance: NICOTINE
     Indication: PRODUCT USED FOR UNKNOWN INDICATION

REACTIONS (4)
  - Dizziness [Unknown]
  - Nausea [Recovering/Resolving]
  - Drug interaction [Unknown]
  - Palpitations [Unknown]

NARRATIVE: CASE EVENT DATE: 20170705
